FAERS Safety Report 19379956 (Version 1)
Quarter: 2021Q2

REPORT INFORMATION
  Report Type: Spontaneous
  Country: US (occurrence: US)
  Receive Date: 20210604
  Receipt Date: 20210604
  Transmission Date: 20210717
  Serious: Yes (Other)
  Sender: FDA-Public Use
  Company Number: None

PATIENT
  Age: 0 Day
  Sex: Female
  Weight: 3.86 kg

DRUGS (2)
  1. LEXAPRO [Suspect]
     Active Substance: ESCITALOPRAM OXALATE
  2. FLONASE [Suspect]
     Active Substance: FLUTICASONE PROPIONATE

REACTIONS (1)
  - Dyspnoea [None]

NARRATIVE: CASE EVENT DATE: 20190525
